FAERS Safety Report 20883253 (Version 2)
Quarter: 2022Q2

REPORT INFORMATION
  Report Type: Spontaneous
  Country: US (occurrence: US)
  Receive Date: 20220527
  Receipt Date: 20220601
  Transmission Date: 20220721
  Serious: Yes (Other)
  Sender: FDA-Public Use
  Company Number: US-PFIZER INC-202200741999

PATIENT
  Sex: Female

DRUGS (1)
  1. PAXLOVID [Suspect]
     Active Substance: NIRMATRELVIR\RITONAVIR
     Indication: COVID-19 treatment
     Dosage: UNK
     Dates: start: 20220515, end: 20220519

REACTIONS (13)
  - Abdominal infection [Unknown]
  - Liver disorder [Unknown]
  - Weight decreased [Unknown]
  - Decreased appetite [Unknown]
  - Yellow skin [Unknown]
  - Pruritus [Unknown]
  - Chromaturia [Unknown]
  - Faeces discoloured [Unknown]
  - Gastritis [Unknown]
  - Abdominal pain upper [Unknown]
  - Abdominal pain [Unknown]
  - Illness [Unknown]
  - Pallor [Unknown]

NARRATIVE: CASE EVENT DATE: 20220501
